FAERS Safety Report 15567784 (Version 1)
Quarter: 2018Q4

REPORT INFORMATION
  Report Type: Spontaneous
  Country: US (occurrence: US)
  Receive Date: 20181030
  Receipt Date: 20181030
  Transmission Date: 20190205
  Serious: No
  Sender: FDA-Public Use
  Company Number: US-RISING PHARMACEUTICALS, INC.-2018RIS00010

PATIENT
  Age: 44 Year
  Sex: Female
  Weight: 68.03 kg

DRUGS (2)
  1. CROMOLYN SODIUM. [Suspect]
     Active Substance: CROMOLYN SODIUM
     Dosage: 100 MG, ONCE
     Route: 048
     Dates: start: 201712, end: 201712
  2. UNSPECIFIED THYROID MEDICINE [Concomitant]

REACTIONS (2)
  - Gluten sensitivity [Unknown]
  - Diarrhoea [Recovered/Resolved]

NARRATIVE: CASE EVENT DATE: 201712
